FAERS Safety Report 4301021-X (Version None)
Quarter: 2004Q1

REPORT INFORMATION
  Report Type: 
  Country: None (occurrence: None)
  Receive Date: 20040219
  Receipt Date: 20040204
  Transmission Date: 20041129
  Serious: Yes (Hospitalization, Other)
  Sender: FDA-Public Use
  Company Number: 2004IM000297

PATIENT
  Age: 62 Year
  Sex: Male

DRUGS (8)
  1. ADVAFERON (A643_INTERFERON ALFACON-1) [Suspect]
     Indication: HEPATITIS C
     Dosage: 12 MU; QOD; SUBCUTANEOUS
     Route: 058
     Dates: start: 20020606, end: 20020617
  2. URSODEOXYCHOLIC ACID [Concomitant]
  3. GLYCYRON [Concomitant]
  4. BUFFERIN [Concomitant]
  5. RANITIDINE HYDROCHLORIDE [Concomitant]
  6. DICLOFENAC SODIUM [Concomitant]
  7. LOXOPROFEN SODIUM [Concomitant]
  8. ZOPICLONE [Concomitant]

REACTIONS (3)
  - LOSS OF CONSCIOUSNESS [None]
  - SPEECH DISORDER [None]
  - TONIC CONVULSION [None]
